FAERS Safety Report 23058696 (Version 1)
Quarter: 2023Q4

REPORT INFORMATION
  Report Type: Spontaneous
  Country: US (occurrence: US)
  Receive Date: 20231012
  Receipt Date: 20231012
  Transmission Date: 20240110
  Serious: Yes (Life-Threatening, Hospitalization)
  Sender: FDA-Public Use
  Company Number: US-MYLANLABS-2023M1106600

PATIENT
  Age: 75 Year
  Sex: Male

DRUGS (1)
  1. HYDROCORTISONE [Suspect]
     Active Substance: HYDROCORTISONE
     Indication: Spinal stenosis
     Dosage: UNK, RECEIVED TWICE IN THE S1 REGION
     Route: 008

REACTIONS (6)
  - Cardiogenic shock [Unknown]
  - Bacterial infection [Unknown]
  - Endocarditis [Unknown]
  - Mitral valve incompetence [Unknown]
  - Aortic valve incompetence [Unknown]
  - Off label use [Unknown]
